FAERS Safety Report 7433991-5 (Version None)
Quarter: 2011Q2

REPORT INFORMATION
  Report Type: 
  Country: None (occurrence: None)
  Receive Date: 20110421
  Receipt Date: 20110421
  Transmission Date: 20111010
  Serious: Yes (Life-Threatening, Other)
  Sender: FDA-Public Use
  Company Number: None

PATIENT
  Age: 53 Year
  Sex: Female
  Weight: 78.0187 kg

DRUGS (1)
  1. PREGABALIN [Suspect]
     Indication: FIBROMYALGIA
     Dosage: 100MG TID PO  PRESENT 75 MG TID
     Route: 048

REACTIONS (1)
  - PALPITATIONS [None]
